FAERS Safety Report 5926654-6 (Version None)
Quarter: 2008Q4

REPORT INFORMATION
  Report Type: 
  Country: None (occurrence: None)
  Receive Date: 20081006
  Receipt Date: 20081006
  Transmission Date: 20090506
  Serious: Yes (Hospitalization)
  Sender: FDA-Public Use
  Company Number: 100200

PATIENT
  Age: 56 Year
  Sex: Male

DRUGS (9)
  1. ACETAMINOPHEN [Suspect]
     Indication: PAIN
     Dosage: 1 G/QID/ ORAL
     Route: 048
  2. FENTANYL [Suspect]
     Indication: PAIN
     Dosage: ORAL
     Route: 048
  3. GABAPENTIN [Suspect]
     Dosage: 300 MG TID
  4. HALOPERIDOL [Suspect]
  5. HYDROMORPHONE HCL [Suspect]
     Dosage: 24-25 MG/24 HOURS CSCI FOR ANALGESIA
  6. MORPHINE [Suspect]
  7. OXYCONTIN [Suspect]
     Dosage: 60 MG BID FOR ANALGESIA
  8. ALFENTANIL [Concomitant]
  9. HYDROMORPHONE HCL [Concomitant]

REACTIONS (16)
  - ABDOMINAL DISCOMFORT [None]
  - ABNORMAL BEHAVIOUR [None]
  - AGGRESSION [None]
  - AGITATION [None]
  - DRUG TOXICITY [None]
  - DRUG WITHDRAWAL SYNDROME [None]
  - FEELING ABNORMAL [None]
  - HYPERHIDROSIS [None]
  - HYPERVENTILATION [None]
  - INFECTION [None]
  - MOVEMENT DISORDER [None]
  - MYALGIA [None]
  - PILOERECTION [None]
  - RENAL FAILURE ACUTE [None]
  - RESTLESSNESS [None]
  - TACHYCARDIA [None]
